FAERS Safety Report 8485661-2 (Version None)
Quarter: 2012Q3

REPORT INFORMATION
  Report Type: 
  Country: None (occurrence: None)
  Receive Date: 20120703
  Receipt Date: 20120629
  Transmission Date: 20120928
  Serious: No
  Sender: FDA-Public Use
  Company Number: US-BAYER-2012-065387

PATIENT
  Age: 25 Year
  Sex: Male

DRUGS (1)
  1. GADAVIST [Suspect]
     Indication: SCAN BRAIN
     Dosage: UNK
     Dates: start: 20120628

REACTIONS (2)
  - VOMITING [None]
  - NAUSEA [None]
